FAERS Safety Report 14413472 (Version 2)
Quarter: 2018Q1

REPORT INFORMATION
  Report Type: Report from Study
  Country: US (occurrence: US)
  Receive Date: 20180119
  Receipt Date: 20180125
  Transmission Date: 20180509
  Serious: Yes (Death, Life-Threatening, Hospitalization, Other)
  Sender: FDA-Public Use
  Company Number: US-GILEAD-2018-0316472

PATIENT
  Age: 58 Year
  Sex: Male
  Weight: 67.1 kg

DRUGS (1)
  1. SOFOSBUVIR W/VELPATASVIR [Suspect]
     Active Substance: SOFOSBUVIR\VELPATASVIR
     Indication: CHRONIC HEPATITIS C
     Dosage: 1 DF, UNK
     Route: 048
     Dates: start: 201711, end: 20180114

REACTIONS (3)
  - Liver disorder [Recovered/Resolved]
  - Death [Fatal]
  - Renal disorder [Recovered/Resolved]

NARRATIVE: CASE EVENT DATE: 20180108
